FAERS Safety Report 18631789 (Version 1)
Quarter: 2020Q4

REPORT INFORMATION
  Report Type: Spontaneous
  Country: US (occurrence: US)
  Receive Date: 20201218
  Receipt Date: 20201218
  Transmission Date: 20210114
  Serious: No
  Sender: FDA-Public Use
  Company Number: US-LUPIN PHARMACEUTICALS INC.-2020-05393

PATIENT
  Age: 70 Year
  Sex: Male
  Weight: 86.17 kg

DRUGS (3)
  1. HYDROCODONE BITARTRATE AND ACETAMINOPHEN [Suspect]
     Active Substance: ACETAMINOPHEN\HYDROCODONE BITARTRATE
     Indication: NEURALGIA
     Dosage: 0.5 DOSAGE FORM, PRN (1/2 TABLET EVERY 2 HOURS AS NEEDED)
     Route: 048
     Dates: start: 20200816
  2. HYDROCODONE BITARTRATE AND ACETAMINOPHEN [Suspect]
     Active Substance: ACETAMINOPHEN\HYDROCODONE BITARTRATE
     Indication: BACK PAIN
     Dosage: 1 DOSAGE FORM, PRN (1 TABLET EVERY 4 TO 6 HOURS AS NEEDED)
     Route: 048
     Dates: start: 20200703
  3. ASPIRINE [Concomitant]
     Active Substance: ASPIRIN
     Indication: HEADACHE
     Dosage: 1 DOSAGE FORM
     Route: 048
     Dates: start: 20200816

REACTIONS (3)
  - Pyrexia [Recovered/Resolved]
  - Headache [Recovering/Resolving]
  - Product substitution issue [Unknown]

NARRATIVE: CASE EVENT DATE: 202007
